FAERS Safety Report 15279913 (Version 10)
Quarter: 2018Q3

REPORT INFORMATION
  Report Type: Spontaneous
  Country: US (occurrence: US)
  Receive Date: 20180815
  Receipt Date: 20180917
  Transmission Date: 20181010
  Serious: Yes (Hospitalization)
  Sender: FDA-Public Use
  Company Number: US-UNITED THERAPEUTICS-UNT-2018-012648

PATIENT
  Age: 56 Year
  Sex: Female
  Weight: 57.14 kg

DRUGS (5)
  1. TYVASO [Suspect]
     Active Substance: TREPROSTINIL
     Dosage: 18 ?G, QID
  2. TYVASO [Suspect]
     Active Substance: TREPROSTINIL
     Indication: PULMONARY ARTERIAL HYPERTENSION
     Dosage: 18?54 MICROGRAMS, QID
     Dates: start: 20160222, end: 20180807
  3. REMODULIN [Suspect]
     Active Substance: TREPROSTINIL
     Dosage: 0.031 ?G/KG, CONTINUING
     Route: 058
  4. REMODULIN [Suspect]
     Active Substance: TREPROSTINIL
     Indication: PULMONARY ARTERIAL HYPERTENSION
     Dosage: 0.0225 ?G/KG, CONTINUING
     Route: 058
     Dates: start: 20180608
  5. REMODULIN [Suspect]
     Active Substance: TREPROSTINIL
     Dosage: 0.03125 ?G/KG, CONTINUING
     Route: 058

REACTIONS (4)
  - Chest pain [Unknown]
  - Swelling [Unknown]
  - Drug dose omission [Unknown]
  - Oedema peripheral [Unknown]

NARRATIVE: CASE EVENT DATE: 2018
